FAERS Safety Report 23560648 (Version 4)
Quarter: 2024Q2

REPORT INFORMATION
  Report Type: Spontaneous
  Country: FR (occurrence: FR)
  Receive Date: 20240223
  Receipt Date: 20240507
  Transmission Date: 20240716
  Serious: Yes (Hospitalization, Other)
  Sender: FDA-Public Use
  Company Number: FR-009507513-2312FRA009435

PATIENT
  Age: 3 Week
  Sex: Male
  Weight: 3.5 kg

DRUGS (11)
  1. SUGAMMADEX [Suspect]
     Active Substance: SUGAMMADEX
     Indication: Neuromuscular blockade reversal
     Dosage: 15 MILLIGRAM (4.3 MG/KG-1)
     Route: 065
  2. SUGAMMADEX [Suspect]
     Active Substance: SUGAMMADEX
     Dosage: 15 MILLIGRAM (4.3 MG/KG-1)
     Route: 065
  3. SUGAMMADEX [Suspect]
     Active Substance: SUGAMMADEX
     Dosage: 4.3 MG/KG (MILLIGRAM PER KILOGRAM)
     Route: 065
  4. ROCURONIUM [Suspect]
     Active Substance: ROCURONIUM BROMIDE
     Indication: Neuromuscular blocking therapy
     Dosage: 8 MILLIGRAM, TOTAL (2.3 MG/KG, ONCE)
     Route: 065
  5. ROCURONIUM [Suspect]
     Active Substance: ROCURONIUM BROMIDE
     Dosage: 25 MG/KG (MILLIGRAM PER KILOGRAM), SINGLE DOSE
     Route: 065
  6. REMIFENTANIL [Concomitant]
     Active Substance: REMIFENTANIL
     Indication: Induction of anaesthesia
     Dosage: 2.4 MILLIGRAM/KILOGRAM
     Route: 065
  7. REMIFENTANIL [Concomitant]
     Active Substance: REMIFENTANIL
     Indication: Perioperative analgesia
     Dosage: 2.4 UG/KG (MICROGRAM PER KILOGRAM)
     Route: 065
  8. PROPOFOL [Concomitant]
     Active Substance: PROPOFOL
     Indication: Induction of anaesthesia
     Dosage: 3.4 MILLIGRAM/KILOGRAM
     Route: 065
  9. FENTANYL [Concomitant]
     Active Substance: FENTANYL\FENTANYL CITRATE
     Indication: Maintenance of anaesthesia
     Dosage: 2.1 MILLIGRAM/KILOGRAM
     Route: 065
  10. FENTANYL [Concomitant]
     Active Substance: FENTANYL\FENTANYL CITRATE
     Indication: Perioperative analgesia
     Dosage: 2.1 UG/KG (MICROGRAM PER KILOGRAM)
     Route: 065
  11. SEVOFLURANE [Concomitant]
     Active Substance: SEVOFLURANE
     Indication: Maintenance of anaesthesia
     Dosage: UNK
     Route: 065

REACTIONS (12)
  - Hypotonia neonatal [Recovered/Resolved]
  - Cyanosis neonatal [Recovered/Resolved]
  - Neonatal respiratory arrest [Recovered/Resolved]
  - Neonatal respiratory distress [Recovered/Resolved]
  - Recurrence of neuromuscular blockade [Recovered/Resolved]
  - Neuromuscular block prolonged [Recovering/Resolving]
  - Dose calculation error [Unknown]
  - Accidental overdose [Unknown]
  - Overdose [Unknown]
  - Bradypnoea [Recovered/Resolved]
  - Unadjusted dose administered [Unknown]
  - Product administered to patient of inappropriate age [Unknown]
